FAERS Safety Report 9525722 (Version 3)
Quarter: 2013Q4

REPORT INFORMATION
  Report Type: Spontaneous
  Country: JP (occurrence: JP)
  Receive Date: 20130915
  Receipt Date: 20131108
  Transmission Date: 20140711
  Serious: Yes (Hospitalization)
  Sender: FDA-Public Use
  Company Number: JP-009507513-1309JPN003749

PATIENT
  Age: 77 Year
  Sex: Female

DRUGS (3)
  1. FOSAMAC TABLETS 35MG [Suspect]
     Indication: OSTEOPOROSIS
     Dosage: 35 MG, QW
     Route: 048
     Dates: start: 20090127, end: 20100906
  2. ACTONEL [Suspect]
     Indication: OSTEOPOROSIS
     Dosage: 17.5 MG, QW
     Route: 048
     Dates: start: 20100906
  3. ZOMETA [Suspect]
     Dosage: DAILY DOSE UNKNOWN
     Route: 041

REACTIONS (1)
  - Osteomyelitis [Recovered/Resolved]
